FAERS Safety Report 24461252 (Version 1)
Quarter: 2024Q4

REPORT INFORMATION
  Report Type: Report from Study
  Country: CA (occurrence: CA)
  Receive Date: 20241018
  Receipt Date: 20241018
  Transmission Date: 20250114
  Serious: No
  Sender: ROCHE
  Company Number: CA-ROCHE-3534334

PATIENT
  Sex: Male

DRUGS (15)
  1. RITUXAN [Suspect]
     Active Substance: RITUXIMAB
     Indication: Anti-neutrophil cytoplasmic antibody positive vasculitis
     Dosage: PREVIOUS RITUXAN INFUSION WAS ADMINISTERED ON 21/NOV/2023? FREQUENCY TEXT:DAY 1,15
     Route: 041
     Dates: start: 20180516
  2. RITUXAN [Suspect]
     Active Substance: RITUXIMAB
     Indication: Granulomatosis with polyangiitis
     Route: 041
  3. ACETAMINOPHEN [Concomitant]
     Active Substance: ACETAMINOPHEN
     Route: 048
     Dates: start: 20181127
  4. ATASOL (CANADA) [Concomitant]
  5. CALCIUM [Concomitant]
     Active Substance: CALCIUM
  6. COLACE [Concomitant]
     Active Substance: DOCUSATE SODIUM
  7. DIPHENHYDRAMINE [Concomitant]
     Active Substance: DIPHENHYDRAMINE
     Route: 048
     Dates: start: 20181127
  8. HYDROMORPHONE [Concomitant]
     Active Substance: HYDROMORPHONE
  9. IBUPROFEN [Concomitant]
     Active Substance: IBUPROFEN
  10. LYRICA [Concomitant]
     Active Substance: PREGABALIN
     Indication: Neuralgia
  11. NORTRIPTYLINE [Concomitant]
     Active Substance: NORTRIPTYLINE
     Indication: Neuralgia
  12. PREDNISONE [Concomitant]
     Active Substance: PREDNISONE
  13. SOLU-MEDROL [Concomitant]
     Active Substance: METHYLPREDNISOLONE SODIUM SUCCINATE
     Route: 042
     Dates: start: 20181127
  14. SULFATRIM [Concomitant]
     Active Substance: SULFAMETHOXAZOLE\TRIMETHOPRIM
  15. TYLENOL [Concomitant]
     Active Substance: ACETAMINOPHEN

REACTIONS (1)
  - Nasopharyngitis [Recovered/Resolved]
